FAERS Safety Report 6467850-1 (Version None)
Quarter: 2009Q4

REPORT INFORMATION
  Report Type: 
  Country: None (occurrence: None)
  Receive Date: 20091127
  Receipt Date: 20091111
  Transmission Date: 20100525
  Serious: Yes (Hospitalization)
  Sender: FDA-Public Use
  Company Number: AUR-APL-2009-01267

PATIENT
  Age: 36 Year
  Sex: Female

DRUGS (1)
  1. MIRTAZAPINE [Suspect]
     Indication: DEPRESSION
     Dosage: 15MG, DAILY, ORAL
     Route: 048
     Dates: start: 20080716, end: 20080719

REACTIONS (6)
  - DYSGEUSIA [None]
  - DYSPNOEA [None]
  - ERYTHEMA [None]
  - LIP SWELLING [None]
  - RASH [None]
  - TONGUE DISCOLOURATION [None]
